FAERS Safety Report 4684544-3 (Version None)
Quarter: 2005Q2

REPORT INFORMATION
  Report Type: 
  Country: None (occurrence: None)
  Receive Date: 20050531
  Receipt Date: 20041214
  Transmission Date: 20051028
  Serious: Yes (Disabling)
  Sender: FDA-Public Use
  Company Number: US_031299267

PATIENT
  Age: 43 Year
  Sex: Male
  Weight: 123 kg

DRUGS (10)
  1. ZYPREXA [Suspect]
     Indication: DEPRESSION
     Dosage: 15 MG AT BEDTIME
     Dates: start: 20010820, end: 20021201
  2. ZYPREXA [Suspect]
     Indication: INSOMNIA
     Dosage: 15 MG AT BEDTIME
     Dates: start: 20010820, end: 20021201
  3. RISPERIDONE [Concomitant]
  4. CHLORPROMAZINE [Concomitant]
  5. LITHIUM [Concomitant]
  6. AMARYL [Concomitant]
  7. TRIAMCINOLONE [Concomitant]
  8. VIOXX [Concomitant]
  9. GEMFIBROZIL [Concomitant]
  10. UNIVASC [Concomitant]

REACTIONS (12)
  - BLOOD CHOLESTEROL INCREASED [None]
  - BRONCHOPNEUMONIA [None]
  - DIABETES MELLITUS [None]
  - ERECTILE DYSFUNCTION [None]
  - MUSCLE STRAIN [None]
  - PHARYNGITIS [None]
  - POLYDIPSIA [None]
  - RETINOPATHY [None]
  - SINUSITIS [None]
  - TENDONITIS [None]
  - UPPER RESPIRATORY TRACT INFECTION [None]
  - VISION BLURRED [None]
